FAERS Safety Report 13097496 (Version 1)
Quarter: 2017Q1

REPORT INFORMATION
  Report Type: Spontaneous
  Country: US (occurrence: US)
  Receive Date: 20170108
  Receipt Date: 20170108
  Transmission Date: 20170428
  Serious: Yes (Other)
  Sender: FDA-Public Use
  Company Number: None

PATIENT
  Age: 61 Year
  Sex: Female
  Weight: 61.65 kg

DRUGS (5)
  1. VITAMIN B12 [Concomitant]
     Active Substance: CYANOCOBALAMIN
  2. VITAMIN D [Concomitant]
     Active Substance: CHOLECALCIFEROL
  3. FLUNISOLIDE. [Concomitant]
     Active Substance: FLUNISOLIDE
  4. PATIORAZOLE [Concomitant]
  5. VOLUMEN [Suspect]
     Active Substance: BARIUM SULFATE
     Indication: INVESTIGATION
     Route: 048
     Dates: start: 20161229, end: 20161229

REACTIONS (6)
  - Nausea [None]
  - Blood sodium decreased [None]
  - Vomiting [None]
  - Muscle spasms [None]
  - Cardiac flutter [None]
  - Dehydration [None]

NARRATIVE: CASE EVENT DATE: 20161229
